FAERS Safety Report 7536073-7 (Version None)
Quarter: 2011Q2

REPORT INFORMATION
  Report Type: 
  Country: None (occurrence: None)
  Receive Date: 20110602
  Receipt Date: 20070906
  Transmission Date: 20111010
  Serious: Yes (Other)
  Sender: FDA-Public Use
  Company Number: MQ-SEPTODONT-200700206

PATIENT
  Age: 54 Year
  Sex: Male
  Weight: 70 kg

DRUGS (3)
  1. LIDOCAINE [Suspect]
     Dosage: DENTAL
     Route: 004
     Dates: start: 20070809, end: 20070809
  2. LIDOCAINE [Suspect]
     Indication: LOCAL ANAESTHESIA
     Dosage: DENTAL
     Route: 004
     Dates: start: 20070809, end: 20070809
  3. XYLOCONTACT [Concomitant]

REACTIONS (3)
  - STOMATITIS [None]
  - SKIN EXFOLIATION [None]
  - INJECTION SITE ULCER [None]
